FAERS Safety Report 6926144-8 (Version None)
Quarter: 2010Q3

REPORT INFORMATION
  Report Type: 
  Country: None (occurrence: None)
  Receive Date: 20100816
  Receipt Date: 20100802
  Transmission Date: 20110219
  Serious: No
  Sender: FDA-Public Use
  Company Number: US-B.I. PHARMACEUTICALS,INC./RIDGEFIELD-2010-BP-08543BP

PATIENT
  Sex: Female

DRUGS (7)
  1. SPIRIVA [Suspect]
     Indication: CHRONIC OBSTRUCTIVE PULMONARY DISEASE
     Route: 055
     Dates: start: 20100101, end: 20100722
  2. SPIRIVA [Suspect]
     Indication: EMPHYSEMA
  3. KLONOPIN [Concomitant]
     Indication: ANXIETY
     Dosage: 1 MG
     Route: 048
  4. LIPITOR [Concomitant]
     Indication: BLOOD CHOLESTEROL INCREASED
     Dosage: 80 MG
     Route: 048
  5. NEXIUM [Concomitant]
     Indication: GASTROOESOPHAGEAL REFLUX DISEASE
     Dosage: 40 MG
     Route: 048
  6. SEROQUEL [Concomitant]
     Indication: DEPRESSION
     Dosage: 400 MG
     Route: 048
  7. SINGULAIR [Concomitant]
     Indication: DYSPNOEA

REACTIONS (11)
  - DYSPHAGIA [None]
  - DYSPHONIA [None]
  - EATING DISORDER [None]
  - EMOTIONAL DISTRESS [None]
  - OROPHARYNGEAL BLISTERING [None]
  - OROPHARYNGEAL PAIN [None]
  - PAIN [None]
  - SENSATION OF FOREIGN BODY [None]
  - THROAT IRRITATION [None]
  - TONGUE BLISTERING [None]
  - TONGUE DISORDER [None]
